FAERS Safety Report 7041835-9 (Version None)
Quarter: 2010Q4

REPORT INFORMATION
  Report Type: 
  Country: None (occurrence: None)
  Receive Date: 20101007
  Receipt Date: 20100930
  Transmission Date: 20110411
  Serious: Yes (Hospitalization)
  Sender: FDA-Public Use
  Company Number: 016822

PATIENT
  Sex: Male

DRUGS (1)
  1. KEPPRA [Suspect]
     Dosage: (OVERDOSE), (500 MG BID)

REACTIONS (5)
  - DISSOCIATIVE DISORDER [None]
  - DRUG ABUSE [None]
  - HALLUCINATION [None]
  - NERVOUS SYSTEM DISORDER [None]
  - POLYNEUROPATHY ALCOHOLIC [None]
